FAERS Safety Report 21110511 (Version 10)
Quarter: 2022Q4

REPORT INFORMATION
  Report Type: Report from Study
  Country: FR (occurrence: None)
  Receive Date: 20220721
  Receipt Date: 20221227
  Transmission Date: 20230113
  Serious: Yes (Hospitalization, Other)
  Sender: FDA-Public Use
  Company Number: FR-ROCHE-3139694

PATIENT
  Age: 46 Year
  Sex: Female
  Weight: 76.3 kg

DRUGS (5)
  1. ATEZOLIZUMAB [Suspect]
     Active Substance: ATEZOLIZUMAB
     Indication: Leiomyosarcoma metastatic
     Dosage: DATE OF MOST RECENT DOSE OF ATEZOLIZUMAB (2400 MG) PRIOR TO AE AND SAE ONSET: 21/JUN/2022?CYCLE 2 DA
     Route: 041
     Dates: start: 20220530, end: 20220621
  2. INVESTIGATIONAL PRODUCT [Suspect]
     Active Substance: INVESTIGATIONAL PRODUCT
     Indication: Leiomyosarcoma metastatic
     Dosage: C2 D15 ; ON DAYS 1, 8, AND 15 OF CYCLES 1, 2, AND 3 AND ON CYCLE 4 ON DAY 1 EVERY 3 WEEKS.?MOST RECE
     Route: 042
     Dates: start: 20220530, end: 20220628
  3. INSULIN GLARGINE [Concomitant]
     Active Substance: INSULIN GLARGINE
     Indication: Diabetes mellitus
     Dates: start: 20220512
  4. REPAGLINIDE [Concomitant]
     Active Substance: REPAGLINIDE
     Indication: Diabetes mellitus
     Dates: start: 20220608, end: 20220705
  5. REPAGLINIDE [Concomitant]
     Active Substance: REPAGLINIDE
     Dates: start: 20220615

REACTIONS (3)
  - Hepatitis cholestatic [Recovered/Resolved]
  - Hepatic cytolysis [Recovered/Resolved]
  - Abdominal pain [Recovered/Resolved with Sequelae]

NARRATIVE: CASE EVENT DATE: 20220705
